FAERS Safety Report 6218706-0 (Version None)
Quarter: 2009Q2

REPORT INFORMATION
  Report Type: 
  Country: None (occurrence: None)
  Receive Date: 20090608
  Receipt Date: 20090526
  Transmission Date: 20091009
  Serious: Yes (Hospitalization)
  Sender: FDA-Public Use
  Company Number: US-AMGEN-US153246

PATIENT
  Sex: Male

DRUGS (7)
  1. PANITUMUMAB [Suspect]
     Indication: COLORECTAL CANCER
     Route: 042
     Dates: start: 20050517, end: 20050827
  2. OXALIPLATIN [Concomitant]
     Route: 065
     Dates: start: 20050517
  3. AVASTIN [Concomitant]
     Route: 065
  4. DILAUDID [Concomitant]
     Route: 048
  5. OXYCODONE [Concomitant]
     Route: 048
  6. CLINDAMYCIN [Concomitant]
     Route: 061
  7. ATROPINE [Concomitant]
     Route: 048

REACTIONS (1)
  - DEHYDRATION [None]
